FAERS Safety Report 9639028 (Version 1)
Quarter: 2013Q4

REPORT INFORMATION
  Report Type: Spontaneous
  Country: US (occurrence: None)
  Receive Date: 20131018
  Receipt Date: 20131018
  Transmission Date: 20140711
  Serious: Yes (Other)
  Sender: FDA-Public Use
  Company Number: 2013P1020048

PATIENT
  Age: 32 Year
  Sex: Female

DRUGS (4)
  1. FLUOXETINE [Suspect]
  2. SODIUM VALPROATE [Suspect]
     Indication: CONVULSION
  3. UNSPECIFIED ASTHMA INHALERS [Concomitant]
  4. OXAZEPAM [Concomitant]

REACTIONS (4)
  - Confusional state [None]
  - Urinary incontinence [None]
  - Grand mal convulsion [None]
  - Condition aggravated [None]
